FAERS Safety Report 25968990 (Version 1)
Quarter: 2025Q4

REPORT INFORMATION
  Report Type: Spontaneous
  Country: US (occurrence: US)
  Receive Date: 20251028
  Receipt Date: 20251028
  Transmission Date: 20260117
  Serious: Yes (Death)
  Sender: BAYER HEALTHCARE LLC
  Company Number: US-BAYER-2025A138694

PATIENT
  Sex: Male

DRUGS (1)
  1. BAYER LOW DOSE [Suspect]
     Active Substance: ASPIRIN
     Dosage: UNK UNK, QD

REACTIONS (1)
  - Gastric ulcer haemorrhage [Fatal]
